FAERS Safety Report 5492787-4 (Version None)
Quarter: 2007Q4

REPORT INFORMATION
  Report Type: 
  Country: None (occurrence: None)
  Receive Date: 20071019
  Receipt Date: 20071005
  Transmission Date: 20080405
  Serious: Yes (Death)
  Sender: FDA-Public Use
  Company Number: 2007001865

PATIENT
  Age: 56 Year
  Sex: Female

DRUGS (1)
  1. TARCEVA [Suspect]
     Indication: BREAST CANCER METASTATIC
     Dosage: (150 MG, 1 IN 1 D), ORAL
     Route: 048
     Dates: start: 20070715, end: 20070918

REACTIONS (2)
  - DISEASE PROGRESSION [None]
  - RESPIRATORY FAILURE [None]
